FAERS Safety Report 5847807-1 (Version None)
Quarter: 2008Q3

REPORT INFORMATION
  Report Type: 
  Country: None (occurrence: None)
  Receive Date: 20080815
  Receipt Date: 20080815
  Transmission Date: 20090109
  Serious: Yes (Death)
  Sender: FDA-Public Use
  Company Number: None

PATIENT

DRUGS (2)
  1. CUROSURF [Suspect]
     Indication: PREMATURE BABY
     Dosage: 2 ML ET 1-2 ML ET
     Route: 007
     Dates: start: 20080617
  2. CUROSURF [Suspect]
     Indication: PREMATURE BABY
     Dosage: 2 ML ET 1-2 ML ET
     Route: 007
     Dates: start: 20080618

REACTIONS (1)
  - PULMONARY HAEMORRHAGE [None]
